FAERS Safety Report 7767295-8 (Version None)
Quarter: 2011Q3

REPORT INFORMATION
  Report Type: 
  Country: None (occurrence: None)
  Receive Date: 20110922
  Receipt Date: 20110328
  Transmission Date: 20111222
  Serious: No
  Sender: FDA-Public Use
  Company Number: US-ASTRAZENECA-2011SE17400

PATIENT
  Sex: Female

DRUGS (1)
  1. SEROQUEL [Suspect]
     Indication: SLEEP DISORDER
     Route: 048

REACTIONS (5)
  - VISUAL IMPAIRMENT [None]
  - ILL-DEFINED DISORDER [None]
  - EYE PAIN [None]
  - DYSKINESIA [None]
  - OFF LABEL USE [None]
